FAERS Safety Report 5207708-9 (Version None)
Quarter: 2006Q4

REPORT INFORMATION
  Report Type: 
  Country: None (occurrence: None)
  Receive Date: 20061030
  Receipt Date: 20051115
  Transmission Date: 20070319
  Serious: No
  Sender: FDA-Public Use
  Company Number: 2006CT000689

PATIENT
  Age: 62 Year
  Sex: Female
  Weight: 63.9572 kg

DRUGS (16)
  1. VENTAVIS [Suspect]
     Indication: PULMONARY HYPERTENSION
     Dosage: SEE IMAGE
     Route: 055
     Dates: start: 20050930, end: 20051026
  2. VENTAVIS [Suspect]
     Indication: PULMONARY HYPERTENSION
     Dosage: SEE IMAGE
     Route: 055
     Dates: start: 20051026, end: 20051114
  3. NEXIUM [Concomitant]
  4. ALBUTEROL [Concomitant]
  5. ADVAIR DISKUS 100/50 [Concomitant]
  6. PLAQUENIL [Concomitant]
  7. TRACLEER [Concomitant]
  8. SILDENAFIL CITRATE [Concomitant]
  9. WARFARIN SODIUM [Concomitant]
  10. PLENDIL [Concomitant]
  11. FUROSEMIDE [Concomitant]
  12. CITALOPRAM HYDROBROMIDE [Concomitant]
  13. SPORANOX [Concomitant]
  14. AMOXICILLIN TRIHYDRATE [Concomitant]
  15. DOXYCYCLINE HYCLATE [Concomitant]
  16. VITAMIN CAP [Concomitant]

REACTIONS (3)
  - CHEST DISCOMFORT [None]
  - PULMONARY HYPERTENSION [None]
  - RESPIRATORY DISORDER [None]
